FAERS Safety Report 6706267-9 (Version None)
Quarter: 2010Q2

REPORT INFORMATION
  Report Type: 
  Country: None (occurrence: None)
  Receive Date: 20100430
  Receipt Date: 20100430
  Transmission Date: 20101027
  Serious: Yes (Hospitalization)
  Sender: FDA-Public Use
  Company Number: None

PATIENT
  Sex: Female
  Weight: 60.91 kg

DRUGS (4)
  1. FLUOROURACIL [Suspect]
     Dosage: 9408 MG
     Dates: end: 20100408
  2. BEVACIZUMAB (RHUMAB VEGF) [Suspect]
     Dosage: 318 MG
     Dates: end: 20100323
  3. LEUCOVORIN CALCIUM [Suspect]
     Dosage: 1344 MG
     Dates: end: 20100406
  4. ELOXATIN [Suspect]
     Dosage: 286 MG
     Dates: end: 20100406

REACTIONS (1)
  - NEUTROPHIL COUNT DECREASED [None]
